FAERS Safety Report 12187856 (Version 2)
Quarter: 2016Q2

REPORT INFORMATION
  Report Type: Report from Study
  Country: US (occurrence: US)
  Receive Date: 20160317
  Receipt Date: 20160406
  Transmission Date: 20160815
  Serious: Yes (Hospitalization)
  Sender: FDA-Public Use
  Company Number: US-BIOGEN-2016BI00195428

PATIENT
  Age: 38 Year
  Sex: Female

DRUGS (1)
  1. TYSABRI [Suspect]
     Active Substance: NATALIZUMAB
     Indication: MULTIPLE SCLEROSIS
     Route: 042
     Dates: start: 20120510

REACTIONS (12)
  - Dysarthria [Unknown]
  - Multiple sclerosis relapse [Not Recovered/Not Resolved]
  - Choking [Unknown]
  - Radial nerve palsy [Unknown]
  - Fall [Recovered/Resolved]
  - Abasia [Unknown]
  - Central nervous system lesion [Unknown]
  - Drooling [Unknown]
  - Muscle spasms [Unknown]
  - Musculoskeletal stiffness [Unknown]
  - Dysphagia [Unknown]
  - Sensory loss [Unknown]

NARRATIVE: CASE EVENT DATE: 20160228
